FAERS Safety Report 4425360-7 (Version None)
Quarter: 2004Q3

REPORT INFORMATION
  Report Type: 
  Country: None (occurrence: None)
  Receive Date: 20040811
  Receipt Date: 20040727
  Transmission Date: 20050211
  Serious: Yes (Hospitalization, Other)
  Sender: FDA-Public Use
  Company Number: JP-JNJFOC-20040700647

PATIENT
  Sex: Female

DRUGS (7)
  1. ITRIZOLE [Suspect]
     Indication: BODY TINEA
     Route: 049
     Dates: start: 20040204, end: 20040614
  2. ITRIZOLE [Suspect]
     Indication: ONYCHOMYCOSIS
     Route: 049
     Dates: start: 20040204, end: 20040614
  3. APRINDINE HYDROCHLORIDE [Interacting]
     Route: 049
     Dates: start: 20021111, end: 20040614
  4. FAMOTIDINE [Concomitant]
     Route: 049
     Dates: start: 20030203, end: 20040614
  5. SIMVASTATIN [Concomitant]
     Route: 049
  6. ASPIRIN [Concomitant]
     Route: 049
  7. ISOSORBIDE DINITRATE [Concomitant]
     Route: 049

REACTIONS (2)
  - DRUG INTERACTION [None]
  - ELECTROCARDIOGRAM QT PROLONGED [None]
